FAERS Safety Report 19681048 (Version 1)
Quarter: 2021Q3

REPORT INFORMATION
  Report Type: Spontaneous
  Country: US (occurrence: US)
  Receive Date: 20210810
  Receipt Date: 20210810
  Transmission Date: 20211014
  Serious: No
  Sender: FDA-Public Use
  Company Number: US-BAYER-2021-183857

PATIENT
  Age: 50 Year
  Sex: Female

DRUGS (2)
  1. CLARITIN [Suspect]
     Active Substance: LORATADINE
     Indication: HYPERSENSITIVITY
     Dosage: 1 DF
     Route: 048
     Dates: start: 20210725, end: 20210726
  2. CLARITIN [Suspect]
     Active Substance: LORATADINE
     Indication: NASOPHARYNGITIS

REACTIONS (4)
  - Nausea [Recovered/Resolved]
  - Headache [Recovered/Resolved]
  - Drug ineffective [None]
  - Abdominal discomfort [Recovered/Resolved]

NARRATIVE: CASE EVENT DATE: 20210725
